FAERS Safety Report 9726749 (Version 2)
Quarter: 2014Q1

REPORT INFORMATION
  Report Type: Spontaneous
  Country: US (occurrence: US)
  Receive Date: 20131203
  Receipt Date: 20140206
  Transmission Date: 20141002
  Serious: Yes (Other)
  Sender: FDA-Public Use
  Company Number: PHEH2013US024980

PATIENT
  Sex: Female
  Weight: 107.94 kg

DRUGS (3)
  1. FORADIL INHAL. CAPS. [Suspect]
     Dosage: 1 DF, BID
     Route: 055
  2. COMBIVENT [Concomitant]
     Dosage: UNK
  3. ALBUTEROL [Concomitant]
     Dosage: UNK

REACTIONS (3)
  - Heart valve incompetence [Unknown]
  - Dyspnoea [Unknown]
  - Device malfunction [Recovered/Resolved]
